FAERS Safety Report 20153892 (Version 1)
Quarter: 2021Q4

REPORT INFORMATION
  Report Type: Spontaneous
  Country: IT (occurrence: IT)
  Receive Date: 20211207
  Receipt Date: 20211207
  Transmission Date: 20220303
  Serious: Yes (Other)
  Sender: FDA-Public Use
  Company Number: IT-SUN PHARMACEUTICAL INDUSTRIES LTD-2021RR-319604

PATIENT
  Age: 38 Year
  Sex: Male

DRUGS (3)
  1. ERLOTINIB [Suspect]
     Active Substance: ERLOTINIB
     Indication: Lung adenocarcinoma stage IV
     Dosage: 150 MILLIGRAM, DAILY
     Route: 065
     Dates: start: 201709
  2. ERLOTINIB [Suspect]
     Active Substance: ERLOTINIB
     Dosage: 100 MILLIGRAM, UNK
     Route: 065
     Dates: start: 201801
  3. ZOLEDRONIC ACID [Suspect]
     Active Substance: ZOLEDRONIC ACID
     Indication: Lung adenocarcinoma stage IV
     Dosage: 4 MG EVERY 28 DAYS
     Route: 065
     Dates: start: 201709

REACTIONS (4)
  - Therapeutic product effect incomplete [Unknown]
  - Rash [Unknown]
  - Disease progression [Unknown]
  - Drug resistance [Unknown]
